FAERS Safety Report 5016412-1 (Version None)
Quarter: 2006Q2

REPORT INFORMATION
  Report Type: 
  Country: None (occurrence: None)
  Receive Date: 20060602
  Receipt Date: 20060512
  Transmission Date: 20061013
  Serious: Yes (Other)
  Sender: FDA-Public Use
  Company Number: PHBS2006JP07284

PATIENT
  Age: 69 Year
  Sex: Female

DRUGS (9)
  1. LOCHOL [Concomitant]
     Dosage: 20 MG/DAY
     Route: 048
     Dates: start: 20060429, end: 20060505
  2. LOCHOL [Concomitant]
     Dosage: 40 MG/DAY
     Dates: start: 20060506
  3. LOCHOL [Concomitant]
     Dosage: 60 MG/DAY
  4. DIOVAN [Suspect]
     Indication: CARDIAC FAILURE
     Dosage: 80 MG/DAY
     Route: 048
     Dates: start: 20060419, end: 20060420
  5. DIOVAN [Suspect]
     Dosage: 160 MG/DAY
     Route: 048
     Dates: start: 20060420
  6. LASIX [Concomitant]
     Dosage: 20 MG, UNK
     Route: 048
  7. MAINTATE [Concomitant]
     Dosage: 5 MG, UNK
     Route: 048
  8. LANDEL [Concomitant]
     Dosage: 20 MG, UNK
     Route: 048
  9. ALDACTONE [Concomitant]
     Dosage: 25 MG, UNK
     Route: 048

REACTIONS (5)
  - BLOOD CREATININE INCREASED [None]
  - BLOOD POTASSIUM INCREASED [None]
  - BLOOD UREA INCREASED [None]
  - HYPERKALAEMIA [None]
  - RENAL IMPAIRMENT [None]
